FAERS Safety Report 5707590-7 (Version None)
Quarter: 2008Q2

REPORT INFORMATION
  Report Type: 
  Country: None (occurrence: None)
  Receive Date: 20080416
  Receipt Date: 20080408
  Transmission Date: 20081010
  Serious: Yes (Other)
  Sender: FDA-Public Use
  Company Number: US-MERCK-0803USA05024

PATIENT
  Age: 43 Year
  Sex: Female

DRUGS (10)
  1. SINGULAIR [Suspect]
     Indication: ASTHMA
     Route: 048
     Dates: start: 20050101
  2. ATENOLOL [Concomitant]
     Route: 065
  3. CLOBETASOL PROPIONATE [Concomitant]
     Route: 065
  4. VYTORIN [Concomitant]
     Route: 065
  5. AMBIEN [Concomitant]
     Route: 065
  6. SEROQUEL [Concomitant]
     Route: 065
  7. ALBUTEROL [Concomitant]
     Route: 065
  8. RANITIDINE [Concomitant]
     Route: 065
  9. DARVOCET-N [Concomitant]
     Route: 065
  10. LODINE [Concomitant]
     Route: 065

REACTIONS (3)
  - DISTURBANCE IN ATTENTION [None]
  - FLIGHT OF IDEAS [None]
  - SUICIDAL IDEATION [None]
